FAERS Safety Report 8216674-3 (Version None)
Quarter: 2012Q1

REPORT INFORMATION
  Report Type: 
  Country: None (occurrence: None)
  Receive Date: 20120316
  Receipt Date: 20120309
  Transmission Date: 20120608
  Serious: Yes (Hospitalization)
  Sender: FDA-Public Use
  Company Number: US-UCBSA-051583

PATIENT
  Age: 26 Year
  Sex: Female
  Weight: 46.9 kg

DRUGS (25)
  1. LOMOTIL [Concomitant]
     Indication: CROHN'S DISEASE
     Dosage: 2.5-0.025 MG, 2 TID
     Route: 048
  2. APRISO [Concomitant]
     Dosage: 1000 TID
  3. CIMZIA [Suspect]
     Dosage: 1 DOSE
     Route: 058
     Dates: start: 20090101, end: 20090101
  4. APRISO [Concomitant]
     Indication: CROHN'S DISEASE
     Route: 048
     Dates: start: 20090901
  5. ZOLOFT [Concomitant]
     Indication: DEPRESSION
     Route: 048
  6. PENTASA [Concomitant]
     Route: 048
     Dates: start: 20060101, end: 20090901
  7. XANAX [Concomitant]
     Indication: ANXIETY
     Route: 048
  8. APRISO [Concomitant]
     Dosage: 375X4TID
  9. PENTASA [Concomitant]
     Indication: CROHN'S DISEASE
     Route: 048
  10. RIFAXIMIN [Concomitant]
     Dates: start: 20090101, end: 20090101
  11. AMOXICILLIN [Concomitant]
     Indication: CROHN'S DISEASE
     Route: 048
  12. XANAX [Concomitant]
     Dosage: 0.5 ONCE NIGHTLY
     Route: 048
  13. NEXIUM [Concomitant]
     Indication: GASTROOESOPHAGEAL REFLUX DISEASE
     Route: 048
  14. LEVAQUIN [Concomitant]
     Dates: start: 20070101, end: 20080101
  15. AMBIEN [Concomitant]
     Indication: SLEEP DISORDER
     Route: 048
  16. FLORASTOR [Concomitant]
     Indication: CROHN'S DISEASE
  17. DRISDOL [Concomitant]
     Dosage: 50000 UNIT, 1 CAP; EVERY WEEK X 4
     Route: 048
  18. CIMZIA [Suspect]
     Indication: CROHN'S DISEASE
     Route: 058
     Dates: start: 20110110, end: 20120124
  19. LOMOTIL [Concomitant]
     Dosage: 2.5-0.025 MG, 1-2 TAB QID
     Route: 048
  20. LEVAQUIN [Concomitant]
     Indication: CROHN'S DISEASE
     Dosage: 500 DAILY
  21. CANASA [Concomitant]
     Indication: CROHN'S DISEASE
  22. OPIUM [Concomitant]
     Indication: PAIN
     Dosage: 10 MG/ML, 0.6 MI, QID
  23. PERCOCET [Concomitant]
     Indication: PAIN MANAGEMENT
     Dosage: 5-325, 1-2 TABS, ONCE IN 4 HOURS
     Route: 048
  24. RIFAXIMIN [Concomitant]
     Indication: CROHN'S DISEASE
     Route: 048
  25. DRISDOL [Concomitant]
     Dosage: 50000 UNIT; 1 CAP
     Route: 048

REACTIONS (2)
  - INFLUENZA [None]
  - WEIGHT DECREASED [None]
